FAERS Safety Report 8331950-1 (Version None)
Quarter: 2012Q2

REPORT INFORMATION
  Report Type: 
  Country: None (occurrence: None)
  Receive Date: 20120502
  Receipt Date: 20120425
  Transmission Date: 20120825
  Serious: No
  Sender: FDA-Public Use
  Company Number: US-AMGEN-USASP2012026217

PATIENT
  Age: 56 Year
  Sex: Female

DRUGS (2)
  1. ENBREL [Suspect]
     Indication: RHEUMATOID ARTHRITIS
     Dosage: 50 MG, QWK
     Dates: start: 20110922
  2. METHOTREXATE [Concomitant]
     Dosage: UNK
     Dates: start: 20110101

REACTIONS (3)
  - RHEUMATOID ARTHRITIS [None]
  - NAIL INFECTION [None]
  - PAIN [None]
